FAERS Safety Report 18769183 (Version 3)
Quarter: 2021Q1

REPORT INFORMATION
  Report Type: Spontaneous
  Country: US (occurrence: US)
  Receive Date: 20210121
  Receipt Date: 20210310
  Transmission Date: 20210419
  Serious: No
  Sender: FDA-Public Use
  Company Number: US-SA-2021SA017495

PATIENT
  Age: 55 Year
  Sex: Male

DRUGS (3)
  1. LANTUS [Suspect]
     Active Substance: INSULIN GLARGINE
     Indication: TYPE 2 DIABETES MELLITUS
     Dosage: 10 IU, QD
     Dates: start: 20201130
  2. LANTUS [Suspect]
     Active Substance: INSULIN GLARGINE
     Dosage: HAS BEEN TITRATED UPWARD TO 14,16 18, 20 IU
  3. LANTUS [Suspect]
     Active Substance: INSULIN GLARGINE
     Dosage: 24 IU, QD(NIGHTLY )

REACTIONS (3)
  - Incorrect dose administered by device [Unknown]
  - Blood glucose increased [Unknown]
  - Device operational issue [Unknown]
